FAERS Safety Report 23565963 (Version 1)
Quarter: 2024Q1

REPORT INFORMATION
  Report Type: Spontaneous
  Country: US (occurrence: None)
  Receive Date: 20240226
  Receipt Date: 20240226
  Transmission Date: 20240410
  Serious: Yes (Death)
  Sender: FDA-Public Use
  Company Number: None

PATIENT
  Sex: Female

DRUGS (1)
  1. DROXIDOPA [Suspect]
     Active Substance: DROXIDOPA
     Indication: Multiple system atrophy
     Dosage: 600MG 2 TIMES A DAY ORAL?
     Route: 048
     Dates: start: 202301

REACTIONS (1)
  - Death [None]
